FAERS Safety Report 20217962 (Version 1)
Quarter: 2021Q4

REPORT INFORMATION
  Report Type: Spontaneous
  Country: US (occurrence: US)
  Receive Date: 20211222
  Receipt Date: 20211222
  Transmission Date: 20220304
  Serious: No
  Sender: FDA-Public Use
  Company Number: US-BioHaven Pharmaceuticals-2021BHV000302

PATIENT
  Age: 68 Year
  Sex: Male
  Weight: 99.880 kg

DRUGS (7)
  1. NURTEC ODT [Suspect]
     Active Substance: RIMEGEPANT SULFATE
     Indication: Migraine
     Route: 048
  2. TYLENOL [Concomitant]
     Active Substance: ACETAMINOPHEN
     Indication: Migraine
  3. ALTACE [Concomitant]
     Active Substance: RAMIPRIL
  4. PREVACID [Concomitant]
     Active Substance: LANSOPRAZOLE
  5. TEMAZEPAM [Concomitant]
     Active Substance: TEMAZEPAM
  6. VALIUM [Concomitant]
     Active Substance: DIAZEPAM
     Indication: Anxiety
  7. AMLODIPINE [Concomitant]
     Active Substance: AMLODIPINE BESYLATE
     Indication: Hypertension

REACTIONS (5)
  - Nausea [Recovered/Resolved]
  - Heart rate increased [Unknown]
  - Heart rate irregular [Unknown]
  - Migraine [Unknown]
  - Magnetic resonance imaging abnormal [Unknown]

NARRATIVE: CASE EVENT DATE: 20210917
